FAERS Safety Report 8614067-8 (Version None)
Quarter: 2012Q3

REPORT INFORMATION
  Report Type: 
  Country: None (occurrence: None)
  Receive Date: 20120823
  Receipt Date: 20120809
  Transmission Date: 20120928
  Serious: Yes (Hospitalization, Other)
  Sender: FDA-Public Use
  Company Number: US-PAR PHARMACEUTICAL, INC-2012SCPR004569

PATIENT

DRUGS (10)
  1. CIPROFLOXACIN EXTENDED RELEASE [Suspect]
     Indication: CROHN'S DISEASE
     Dosage: 400 MG, TWICE DAILY
     Route: 042
  2. LANSOPRAZOLE [Concomitant]
     Indication: PRODUCT USED FOR UNKNOWN INDICATION
     Dosage: 30 MG, ONCE DAILY
     Route: 048
  3. AZATHIOPRINE SODIUM [Concomitant]
     Indication: PRODUCT USED FOR UNKNOWN INDICATION
     Dosage: 100 MG, ONCE DAILY
     Route: 048
  4. FERROUS SULFATE TAB [Concomitant]
     Indication: PRODUCT USED FOR UNKNOWN INDICATION
     Dosage: 325 MG, TWICE DAILY
     Route: 048
  5. METHYLPREDNISOLONE [Concomitant]
     Indication: PRODUCT USED FOR UNKNOWN INDICATION
     Dosage: 40 MG, DAILY
     Route: 042
  6. CIPROFLOXACIN EXTENDED RELEASE [Suspect]
     Indication: PERIRECTAL ABSCESS
  7. MESALAMINE [Concomitant]
     Dosage: 500 MG, FOUR TIMES DAILY; EVERY 6 HOURS/ DAY
     Route: 048
  8. METRONIDAZOLE [Concomitant]
     Indication: PERIRECTAL ABSCESS
     Dosage: 500 MG, EVERY 6 HOURS
     Route: 042
  9. METRONIDAZOLE [Concomitant]
     Indication: CROHN'S DISEASE
     Dosage: 500 MG, TWICE DAILY
     Route: 048
  10. MESALAMINE [Concomitant]
     Indication: PRODUCT USED FOR UNKNOWN INDICATION
     Dosage: 2 G, ONCE DAILY
     Route: 048

REACTIONS (2)
  - ELECTROCARDIOGRAM QT PROLONGED [None]
  - BRADYCARDIA [None]
